FAERS Safety Report 23140491 (Version 1)
Quarter: 2023Q4

REPORT INFORMATION
  Report Type: Spontaneous
  Country: KR (occurrence: KR)
  Receive Date: 20231102
  Receipt Date: 20231102
  Transmission Date: 20240109
  Serious: No
  Sender: FDA-Public Use
  Company Number: KR-SCALL-2023-APC-140204

PATIENT
  Sex: Male

DRUGS (1)
  1. DUTASTERIDE [Suspect]
     Active Substance: DUTASTERIDE
     Route: 048

REACTIONS (4)
  - Nausea [Unknown]
  - Dizziness [Unknown]
  - Motion sickness [Unknown]
  - Extra dose administered [Unknown]
